FAERS Safety Report 23783509 (Version 1)
Quarter: 2024Q2

REPORT INFORMATION
  Report Type: Spontaneous
  Country: US (occurrence: None)
  Receive Date: 20240424
  Receipt Date: 20240424
  Transmission Date: 20240715
  Serious: No
  Sender: FDA-Public Use
  Company Number: None

PATIENT
  Age: 36 Year
  Sex: Male
  Weight: 143 kg

DRUGS (1)
  1. PIPERACILLIN SODIUM\TAZOBACTAM SODIUM [Suspect]
     Active Substance: PIPERACILLIN SODIUM\TAZOBACTAM SODIUM
     Indication: Pneumonia
     Dates: start: 20230427, end: 20230427

REACTIONS (8)
  - Anaphylactic reaction [None]
  - Angioedema [None]
  - Anxiety [None]
  - Hyperhidrosis [None]
  - Flushing [None]
  - Hypertension [None]
  - Rash [None]
  - Tachycardia [None]

NARRATIVE: CASE EVENT DATE: 20230427
